FAERS Safety Report 14822421 (Version 2)
Quarter: 2018Q3

REPORT INFORMATION
  Report Type: Spontaneous
  Country: US (occurrence: US)
  Receive Date: 20180427
  Receipt Date: 20180727
  Transmission Date: 20181010
  Serious: Yes (Death)
  Sender: FDA-Public Use
  Company Number: US-EMERGENT BIOSOLUTIONS-18000068SP

PATIENT
  Sex: Male

DRUGS (1)
  1. BAT [Suspect]
     Active Substance: EQUINE BOTULINUM NEUROTOXIN A/B/C/D/E/F/G IMMUNE FAB2
     Indication: BOTULISM
     Dosage: UNK UNK, SINGLE
     Route: 042
     Dates: start: 20180326

REACTIONS (1)
  - Respiratory failure [Fatal]
